FAERS Safety Report 16004993 (Version 3)
Quarter: 2019Q1

REPORT INFORMATION
  Report Type: Report from Study
  Country: CA (occurrence: CA)
  Receive Date: 20190226
  Receipt Date: 20190311
  Transmission Date: 20190418
  Serious: Yes (Death, Hospitalization)
  Sender: FDA-Public Use
  Company Number: PHHY2019CA040624

PATIENT
  Sex: Female

DRUGS (1)
  1. KISQALI [Suspect]
     Active Substance: RIBOCICLIB
     Indication: BREAST CANCER METASTATIC
     Dosage: UNK
     Route: 048
     Dates: start: 20190115

REACTIONS (6)
  - Metastases to central nervous system [Fatal]
  - Status epilepticus [Fatal]
  - Malignant neoplasm progression [Fatal]
  - Feeling abnormal [Unknown]
  - Seizure [Fatal]
  - Breast cancer metastatic [Fatal]
